FAERS Safety Report 5115352-7 (Version None)
Quarter: 2006Q3

REPORT INFORMATION
  Report Type: 
  Country: None (occurrence: None)
  Receive Date: 20060922
  Receipt Date: 20060913
  Transmission Date: 20061208
  Serious: Yes (Life-Threatening, Hospitalization)
  Sender: FDA-Public Use
  Company Number: SE-2006-027198

PATIENT
  Age: 55 Year
  Sex: Female

DRUGS (5)
  1. BETAFERON (INTERFERON BETA - 1B) INJECTION, 250UG [Suspect]
     Indication: SECONDARY PROGRESSIVE MULTIPLE SCLEROSIS
     Dosage: 250 RG
     Dates: start: 19990801
  2. NEURONTIN [Concomitant]
  3. TOLTERODINE TARTRATE [Concomitant]
  4. FLUOXETINE [Concomitant]
  5. FURADANTIN [Concomitant]

REACTIONS (2)
  - ACUTE MYOCARDIAL INFARCTION [None]
  - CARDIAC ARREST [None]
